FAERS Safety Report 7710153-5 (Version None)
Quarter: 2011Q3

REPORT INFORMATION
  Report Type: 
  Country: None (occurrence: None)
  Receive Date: 20110825
  Receipt Date: 20110822
  Transmission Date: 20111222
  Serious: Yes (Hospitalization)
  Sender: FDA-Public Use
  Company Number: FR-PFIZER INC-2011154235

PATIENT
  Age: 69 Year
  Sex: Female

DRUGS (9)
  1. ALDALIX [Suspect]
     Indication: HYPERTENSION
     Dosage: 1 DF, 1X/DAY
     Route: 048
     Dates: end: 20060321
  2. GLUCOPHAGE [Suspect]
     Dosage: 850 MG, DAILY
     Route: 048
     Dates: end: 20060321
  3. IRBESARTAN [Suspect]
     Indication: HYPERTENSION
     Dosage: 300 MG, 1X/DAY
     Route: 048
  4. VERAPAMIL HCL [Suspect]
     Indication: HYPERTENSION
     Dosage: 240 MG, 1X/DAY
     Route: 048
     Dates: end: 20060321
  5. FUROSEMIDE [Concomitant]
     Dosage: UNK
     Dates: end: 20060301
  6. GLIPIZIDE [Suspect]
     Indication: TYPE 2 DIABETES MELLITUS
     Dosage: UNK
     Dates: end: 20060321
  7. CO-TRIATEC [Suspect]
     Indication: HYPERTENSION
     Dosage: 5 MG, 1X/DAY
     Route: 048
  8. MEDIATENSYL [Concomitant]
     Dosage: 60 MG, 2X/DAY
  9. FUROSEMIDE [Concomitant]
     Dosage: 2 TABLET IN THE MORNING AND 1 AT MIDDAY

REACTIONS (3)
  - METABOLIC ACIDOSIS [None]
  - RENAL FAILURE ACUTE [None]
  - HYPERKALAEMIA [None]
